FAERS Safety Report 25804593 (Version 2)
Quarter: 2025Q4

REPORT INFORMATION
  Report Type: Spontaneous
  Country: EU (occurrence: EU)
  Receive Date: 20250915
  Receipt Date: 20251014
  Transmission Date: 20260117
  Serious: Yes (Other)
  Sender: ELI LILLY AND COMPANY
  Company Number: None

PATIENT
  Age: 60 Year
  Sex: Female

DRUGS (1)
  1. MOUNJARO [Suspect]
     Active Substance: TIRZEPATIDE
     Indication: Weight control
     Dosage: 10 MG, WEEKLY (1/W)
     Route: 065
     Dates: start: 20241211, end: 20250820

REACTIONS (4)
  - Capillaritis [Not Recovered/Not Resolved]
  - Foot fracture [Recovering/Resolving]
  - Haematoma [Recovered/Resolved]
  - Skin fragility [Recovering/Resolving]

NARRATIVE: CASE EVENT DATE: 20250201
